FAERS Safety Report 8452387-0 (Version None)
Quarter: 2012Q2

REPORT INFORMATION
  Report Type: 
  Country: None (occurrence: None)
  Receive Date: 20120620
  Receipt Date: 20120409
  Transmission Date: 20120825
  Serious: No
  Sender: FDA-Public Use
  Company Number: US-VERTEX PHARMACEUTICALS INC.-AE-2012-005093

PATIENT
  Sex: Male
  Weight: 74.456 kg

DRUGS (7)
  1. MOBIC [Concomitant]
     Route: 048
  2. ADDERALL 5 [Concomitant]
     Route: 048
  3. PROCHLORPERAZINE [Concomitant]
     Route: 048
  4. INCIVEK [Suspect]
     Indication: HEPATITIS C
     Route: 048
     Dates: start: 20111201, end: 20120201
  5. LISINOPRIL [Concomitant]
     Route: 048
  6. PEGASYS [Concomitant]
     Indication: HEPATITIS C
     Route: 058
     Dates: start: 20111201
  7. RIBASPHERE [Concomitant]
     Indication: HEPATITIS C
     Route: 048
     Dates: start: 20111201

REACTIONS (1)
  - CLUSTER HEADACHE [None]
